FAERS Safety Report 18528522 (Version 3)
Quarter: 2021Q3

REPORT INFORMATION
  Report Type: Spontaneous
  Country: US (occurrence: US)
  Receive Date: 20201120
  Receipt Date: 20210810
  Transmission Date: 20211014
  Serious: Yes (Other)
  Sender: FDA-Public Use
  Company Number: US-JNJFOC-20201127187

PATIENT
  Sex: Female

DRUGS (7)
  1. ADDERALL [Concomitant]
     Active Substance: AMPHETAMINE ASPARTATE\AMPHETAMINE SULFATE\DEXTROAMPHETAMINE SACCHARATE\DEXTROAMPHETAMINE SULFATE
     Indication: ENERGY INCREASED
     Dates: start: 2019
  2. CLOMIPRAMINE [Concomitant]
     Active Substance: CLOMIPRAMINE
     Indication: DEPRESSION
     Dates: start: 2019
  3. BUPRENORPHINE. [Concomitant]
     Active Substance: BUPRENORPHINE
     Indication: DEPRESSION
     Dates: start: 2020
  4. ELMIRON [Suspect]
     Active Substance: PENTOSAN POLYSULFATE SODIUM
     Indication: CYSTITIS INTERSTITIAL
     Route: 048
     Dates: start: 2000, end: 2020
  5. MYRBETRIQ [Concomitant]
     Active Substance: MIRABEGRON
     Indication: CYSTITIS INTERSTITIAL
     Dates: start: 202006
  6. OMEPRAZOLE. [Concomitant]
     Active Substance: OMEPRAZOLE
     Indication: GASTROOESOPHAGEAL REFLUX DISEASE
     Dates: start: 2000
  7. BABY ASPIRIN [Concomitant]
     Active Substance: ASPIRIN
     Indication: CARDIAC DISORDER
     Dates: start: 2016

REACTIONS (5)
  - Macular degeneration [Not Recovered/Not Resolved]
  - Product use issue [Unknown]
  - Off label use [Unknown]
  - Maculopathy [Not Recovered/Not Resolved]
  - Retinal depigmentation [Not Recovered/Not Resolved]

NARRATIVE: CASE EVENT DATE: 2000
